FAERS Safety Report 7118795-5 (Version None)
Quarter: 2010Q4

REPORT INFORMATION
  Report Type: 
  Country: None (occurrence: None)
  Receive Date: 20101123
  Receipt Date: 20101026
  Transmission Date: 20110411
  Serious: No
  Sender: FDA-Public Use
  Company Number: US-KINGPHARMUSA00001-K201001325

PATIENT
  Sex: Female

DRUGS (1)
  1. FLECTOR [Suspect]
     Dosage: 1 PATCH, QD FOR 12 HOURS
     Route: 061
     Dates: start: 20101025

REACTIONS (2)
  - APPLICATION SITE PAIN [None]
  - PRURITUS GENERALISED [None]
